FAERS Safety Report 5374667-8 (Version None)
Quarter: 2007Q2

REPORT INFORMATION
  Report Type: 
  Country: None (occurrence: None)
  Receive Date: 20070621
  Receipt Date: 20070508
  Transmission Date: 20071010
  Serious: Yes (Life-Threatening)
  Sender: FDA-Public Use
  Company Number: 13720826

PATIENT
  Sex: Female

DRUGS (5)
  1. EMSAM [Suspect]
     Indication: MAJOR DEPRESSION
     Dosage: 1 DOSAGE FORM,24 HOUR TD
     Route: 062
     Dates: end: 20070301
  2. RITALIN [Concomitant]
  3. TEMAZEPAM [Concomitant]
  4. TRAZODONE HCL [Concomitant]
  5. VALIUM [Concomitant]

REACTIONS (3)
  - FALL [None]
  - HEAD INJURY [None]
  - HYPOTENSION [None]
